FAERS Safety Report 5663588-9 (Version None)
Quarter: 2008Q1

REPORT INFORMATION
  Report Type: 
  Country: None (occurrence: None)
  Receive Date: 20080304
  Receipt Date: 20080221
  Transmission Date: 20080703
  Serious: Yes (Death, Other)
  Sender: FDA-Public Use
  Company Number: WAES 0802USA06207

PATIENT
  Age: 51 Year
  Sex: Male

DRUGS (15)
  1. PRIMAXIN [Suspect]
     Dosage: 3 DOSE/DAILY IV
     Route: 042
  2. AMBISOME [Suspect]
     Indication: MUCORMYCOSIS
     Dosage: 7.5 MG/KG/DAILY IV; 10 MG/KG/BID IV; 7.5 MG/KG/DAILY IV; 10 MG/KG/DAILY IV; 3 MG/KG/BID IV
     Route: 042
     Dates: start: 20070831, end: 20070904
  3. AMBISOME [Suspect]
     Indication: MUCORMYCOSIS
     Dosage: 7.5 MG/KG/DAILY IV; 10 MG/KG/BID IV; 7.5 MG/KG/DAILY IV; 10 MG/KG/DAILY IV; 3 MG/KG/BID IV
     Route: 042
     Dates: start: 20070907, end: 20070911
  4. AMBISOME [Suspect]
     Indication: MUCORMYCOSIS
     Dosage: 7.5 MG/KG/DAILY IV; 10 MG/KG/BID IV; 7.5 MG/KG/DAILY IV; 10 MG/KG/DAILY IV; 3 MG/KG/BID IV
     Route: 042
     Dates: start: 20070912, end: 20070913
  5. AMBISOME [Suspect]
     Indication: MUCORMYCOSIS
     Dosage: 7.5 MG/KG/DAILY IV; 10 MG/KG/BID IV; 7.5 MG/KG/DAILY IV; 10 MG/KG/DAILY IV; 3 MG/KG/BID IV
     Route: 042
     Dates: start: 20070917, end: 20070918
  6. AMBISOME [Suspect]
     Indication: MUCORMYCOSIS
     Dosage: 7.5 MG/KG/DAILY IV; 10 MG/KG/BID IV; 7.5 MG/KG/DAILY IV; 10 MG/KG/DAILY IV; 3 MG/KG/BID IV
     Route: 042
     Dates: start: 20070919, end: 20070922
  7. AMBISOME [Suspect]
     Indication: MUCORMYCOSIS
     Dosage: 7.5 MG/KG/DAILY IV; 10 MG/KG/BID IV; 7.5 MG/KG/DAILY IV; 10 MG/KG/DAILY IV; 3 MG/KG/BID IV
     Route: 042
     Dates: start: 20070925
  8. COVERSYL (PERINDOPRIL ARGININE) (PERINDOPRIL A [Suspect]
     Dosage: 3 MG/ PO
     Route: 048
     Dates: start: 20070921, end: 20070923
  9. INSULIN [Suspect]
     Indication: DIABETES MELLITUS
     Dosage: SC
     Route: 058
     Dates: start: 20070905
  10. LANTUS [Suspect]
     Indication: DIABETES MELLITUS
     Dosage: 1 DOSE/DAILY SC
     Route: 058
  11. CALCIPARINE [Suspect]
     Indication: PROPHYLAXIS
     Dosage: 2 DOSE/DAILY SC
     Route: 058
  12. OMEPRAZOLE [Suspect]
     Dosage: 1 DOSE/DAILY IV
     Route: 042
  13. EUPRESSYL [Concomitant]
  14. LOXEN [Concomitant]
  15. SECTRAL [Concomitant]

REACTIONS (3)
  - CARDIO-RESPIRATORY ARREST [None]
  - NO THERAPEUTIC RESPONSE [None]
  - RENAL FAILURE ACUTE [None]
